FAERS Safety Report 16926350 (Version 1)
Quarter: 2019Q4

REPORT INFORMATION
  Report Type: Spontaneous
  Country: CN (occurrence: CN)
  Receive Date: 20191016
  Receipt Date: 20191016
  Transmission Date: 20200122
  Serious: Yes (Other)
  Sender: FDA-Public Use
  Company Number: CN-ASTRAZENECA-2019SF45252

PATIENT
  Age: 66 Year
  Sex: Male

DRUGS (6)
  1. IPRATROPIUM BROMIDE. [Suspect]
     Active Substance: IPRATROPIUM BROMIDE
     Indication: PRODUCTIVE COUGH
     Dosage: 0.5MG, 0.3 DAYS,
     Route: 055
     Dates: start: 20190920, end: 20190920
  2. BUDESONIDE. [Suspect]
     Active Substance: BUDESONIDE
     Indication: PRODUCTIVE COUGH
     Dosage: 1MG, 0.3 DAYS
     Route: 055
     Dates: start: 20190920, end: 20190920
  3. LAILIXIN [Concomitant]
     Active Substance: LEVOFLOXACIN
  4. LEVOFLOXACIN LACTATE [Concomitant]
     Active Substance: LEVOFLOXACIN LACTATE
  5. SODIUM CHOLRIDE [Concomitant]
     Indication: INFECTION
     Dosage: 0.5MG, DAILY
     Route: 043
     Dates: start: 20190920, end: 20190925
  6. SALBUTAMOL SULFATE [Suspect]
     Active Substance: ALBUTEROL SULFATE
     Indication: PRODUCTIVE COUGH
     Dosage: 10MG, 0.3 DAYS
     Route: 055
     Dates: start: 20190920, end: 20190920

REACTIONS (5)
  - Heart rate increased [Recovered/Resolved]
  - Blood pressure increased [Recovered/Resolved]
  - Tremor [Recovering/Resolving]
  - Chest discomfort [Recovered/Resolved]
  - Palpitations [Recovered/Resolved]
